FAERS Safety Report 9578751 (Version 1)
Quarter: 2013Q4

REPORT INFORMATION
  Report Type: Spontaneous
  Country: US (occurrence: US)
  Receive Date: 20131001
  Receipt Date: 20131001
  Transmission Date: 20140711
  Serious: No
  Sender: FDA-Public Use
  Company Number: US-AMGEN-USASP2013014722

PATIENT
  Age: 73 Year
  Sex: Male
  Weight: 136.5 kg

DRUGS (10)
  1. ENBREL [Suspect]
     Indication: PRODUCT USED FOR UNKNOWN INDICATION
     Dosage: 50 MG, QWK
     Route: 058
  2. ALLOPURINOL [Concomitant]
     Dosage: 100 MG, UNK
  3. NOVOLOG MIX [Concomitant]
     Dosage: UNK, 70/30
  4. POTASSIUM [Concomitant]
     Dosage: 75 MG, UNK
  5. LASIX                              /00032601/ [Concomitant]
     Dosage: 20 MG, UNK
  6. LIPITOR [Concomitant]
     Dosage: 10 MG, UNK
  7. PLAVIX [Concomitant]
     Dosage: 75 MG, UNK
  8. CELEBREX [Concomitant]
     Dosage: 50 MG, UNK
  9. LEVEMIR [Concomitant]
     Dosage: UNK
  10. STELARA [Concomitant]
     Dosage: UNK

REACTIONS (1)
  - Drug ineffective [Recovered/Resolved]
